FAERS Safety Report 10338071 (Version 1)
Quarter: 2014Q3

REPORT INFORMATION
  Report Type: Spontaneous
  Country: US (occurrence: US)
  Receive Date: 20140724
  Receipt Date: 20140724
  Transmission Date: 20150326
  Serious: No
  Sender: FDA-Public Use
  Company Number: US-MYLANLABS-2014S1009743

PATIENT
  Sex: Female

DRUGS (1)
  1. TRAMADOL HYDROCHLORIDE TABLETS [Suspect]
     Active Substance: TRAMADOL HYDROCHLORIDE

REACTIONS (1)
  - Psychomotor hyperactivity [Not Recovered/Not Resolved]
